FAERS Safety Report 10392927 (Version 2)
Quarter: 2014Q3

REPORT INFORMATION
  Report Type: Report from Study
  Country: US (occurrence: US)
  Receive Date: 20140819
  Receipt Date: 20140819
  Transmission Date: 20150326
  Serious: Yes (Death, Hospitalization)
  Sender: FDA-Public Use
  Company Number: US-ROCHE-261490

PATIENT
  Age: 77 Year
  Sex: Male
  Weight: 85.7 kg

DRUGS (3)
  1. ACCUPRIL [Concomitant]
     Active Substance: QUINAPRIL HYDROCHLORIDE
     Route: 065
  2. CAPECITABINE [Suspect]
     Active Substance: CAPECITABINE
     Indication: MESOTHELIOMA MALIGNANT
     Dosage: 14 DAYS TREATMENT.
     Route: 048
     Dates: start: 20010425, end: 20010508
  3. HYDROCHLOROTHIAZIDE. [Concomitant]
     Active Substance: HYDROCHLOROTHIAZIDE
     Route: 065

REACTIONS (6)
  - Sepsis [Fatal]
  - Diarrhoea [Fatal]
  - Neutropenia [Fatal]
  - Pyrexia [Fatal]
  - Dehydration [Fatal]
  - Mucosal inflammation [Unknown]

NARRATIVE: CASE EVENT DATE: 20010511
